FAERS Safety Report 15238047 (Version 1)
Quarter: 2018Q3

REPORT INFORMATION
  Report Type: Spontaneous
  Country: US (occurrence: US)
  Receive Date: 20180803
  Receipt Date: 20180803
  Transmission Date: 20181010
  Serious: No
  Sender: FDA-Public Use
  Company Number: US-JNJFOC-20180715035

PATIENT
  Age: 29 Year
  Sex: Female
  Weight: 63.5 kg

DRUGS (1)
  1. TYLENOL EXTRA STRENGTH [Suspect]
     Active Substance: ACETAMINOPHEN
     Indication: FRACTURE PAIN
     Dosage: EVERY 6 HOURS
     Route: 065
     Dates: start: 20180709, end: 20180709

REACTIONS (3)
  - Product use in unapproved indication [Unknown]
  - Rash pruritic [Not Recovered/Not Resolved]
  - Off label use [Unknown]

NARRATIVE: CASE EVENT DATE: 20180709
